FAERS Safety Report 16366246 (Version 1)
Quarter: 2019Q2

REPORT INFORMATION
  Report Type: Spontaneous
  Country: US (occurrence: US)
  Receive Date: 20190422
  Receipt Date: 20190422
  Transmission Date: 20190711
  Serious: No
  Sender: FDA-Public Use
  Company Number: None

PATIENT
  Age: 65 Year
  Sex: Female

DRUGS (1)
  1. TENOFOVIR DF  300MG TAB (X30) [Suspect]
     Active Substance: TENOFOVIR
     Dosage: OTHER
     Route: 048
     Dates: start: 201806

REACTIONS (3)
  - Product substitution issue [None]
  - Abdominal discomfort [None]
  - Feeling hot [None]

NARRATIVE: CASE EVENT DATE: 20190301
